FAERS Safety Report 5037577-1 (Version None)
Quarter: 2006Q2

REPORT INFORMATION
  Report Type: 
  Country: None (occurrence: None)
  Receive Date: 20060628
  Receipt Date: 20060619
  Transmission Date: 20061013
  Serious: Yes (Hospitalization)
  Sender: FDA-Public Use
  Company Number: CZ-GLAXOSMITHKLINE-B0428641A

PATIENT
  Age: 16 Year
  Sex: Female

DRUGS (3)
  1. AUGMENTIN '125' [Suspect]
     Indication: URINARY TRACT INFECTION
     Dosage: 1.2G THREE TIMES PER DAY
     Route: 042
     Dates: start: 20060520, end: 20060528
  2. IBUPROFEN [Concomitant]
     Dosage: 400MG THREE TIMES PER DAY
  3. MYOLASTAN [Concomitant]

REACTIONS (3)
  - ERYTHEMA [None]
  - EYELID OEDEMA [None]
  - PRURITUS [None]
